FAERS Safety Report 7655716-0 (Version None)
Quarter: 2011Q3

REPORT INFORMATION
  Report Type: 
  Country: None (occurrence: None)
  Receive Date: 20110804
  Receipt Date: 20110726
  Transmission Date: 20111222
  Serious: Yes (Hospitalization, Other)
  Sender: FDA-Public Use
  Company Number: DE-NOVOPROD-328967

PATIENT

DRUGS (17)
  1. METFORMIN HCL [Concomitant]
     Dosage: UNK
  2. NOVAMINSULFON [Concomitant]
  3. ZOSTEX [Concomitant]
  4. METOHEXAL COMP [Concomitant]
  5. ALLOPURINOL [Concomitant]
     Dosage: UNK
  6. OMEPRAZOLE [Concomitant]
     Dosage: 20 MG, UNK
  7. LEVOFLOXACIN [Concomitant]
  8. OMEPRAZOLE [Concomitant]
  9. FRAGMIN [Concomitant]
  10. ALLOBETA [Concomitant]
  11. FERRO SANOL DUODEN [Concomitant]
  12. VICTOZA [Suspect]
     Indication: TYPE 2 DIABETES MELLITUS
     Dosage: 1 UNK, QD
     Route: 058
     Dates: start: 20090401
  13. METOPROLOL TARTRATE [Concomitant]
  14. BYETTA [Concomitant]
     Dosage: UNK
     Dates: start: 20070801, end: 20100101
  15. AVELOX [Concomitant]
  16. RAMIPRIL [Concomitant]
  17. PANTOPRAZOL                        /01263202/ [Concomitant]

REACTIONS (1)
  - PANCREATITIS [None]
